FAERS Safety Report 23719517 (Version 1)
Quarter: 2024Q2

REPORT INFORMATION
  Report Type: Report from Study
  Country: CN (occurrence: CN)
  Receive Date: 20240408
  Receipt Date: 20240408
  Transmission Date: 20240716
  Serious: Yes (Other)
  Sender: FDA-Public Use
  Company Number: CN-ELI_LILLY_AND_COMPANY-CN202403017919

PATIENT
  Age: 59 Year
  Sex: Female

DRUGS (2)
  1. CYRAMZA [Suspect]
     Active Substance: RAMUCIRUMAB
     Indication: Gastric cancer
     Dosage: 500 MG, OTHER (EVERY THREE WEEK)
     Route: 041
     Dates: start: 20240218
  2. PACLITAXEL [Concomitant]
     Active Substance: PACLITAXEL
     Indication: Gastric cancer
     Dosage: 120 MG, UNKNOWN
     Route: 041
     Dates: start: 20240218

REACTIONS (11)
  - Gamma-glutamyltransferase increased [Unknown]
  - Blood potassium decreased [Unknown]
  - Apolipoprotein A-I increased [Unknown]
  - Gastrointestinal disorder [Unknown]
  - Aspartate aminotransferase increased [Unknown]
  - Blood alkaline phosphatase increased [Unknown]
  - Carbon dioxide increased [Unknown]
  - Blood glucose increased [Unknown]
  - Blood triglycerides increased [Unknown]
  - High density lipoprotein increased [Unknown]
  - Low density lipoprotein increased [Unknown]
